FAERS Safety Report 7067594-1 (Version None)
Quarter: 2010Q4

REPORT INFORMATION
  Report Type: 
  Country: None (occurrence: None)
  Receive Date: 20101028
  Receipt Date: 20101020
  Transmission Date: 20110411
  Serious: Yes (Life-Threatening, Hospitalization, Other)
  Sender: FDA-Public Use
  Company Number: DE-BRISTOL-MYERS SQUIBB COMPANY-15043094

PATIENT
  Age: 55 Year
  Sex: Male
  Weight: 46 kg

DRUGS (3)
  1. CETUXIMAB [Suspect]
     Indication: NON-SMALL CELL LUNG CANCER
     Dosage: RECNT INFU:24MAR,ABS DOSE:380MG,LAST:21APR2010(8 INF) RESTARTED ON 03MAY2010
     Route: 042
     Dates: start: 20100224
  2. CARBOPLATIN [Suspect]
     Indication: NON-SMALL CELL LUNG CANCER
     Dosage: RECENT DOSE:07APR2010 (3 INF) 1DF:AUC 5; ABS DOSE:545
     Route: 042
     Dates: start: 20100224
  3. GEMZAR [Suspect]
     Indication: NON-SMALL CELL LUNG CANCER
     Dosage: DAY 1 + 8 OF EVERY 3 WEEKS; ABS DOSE:1824; LAST DOSE: 14APR2010 (TOTAL 6 INF)
     Route: 042
     Dates: start: 20100224

REACTIONS (5)
  - ASTHENIA [None]
  - DEHYDRATION [None]
  - GENERAL PHYSICAL HEALTH DETERIORATION [None]
  - NAUSEA [None]
  - WEIGHT DECREASED [None]
